FAERS Safety Report 7600540-8 (Version None)
Quarter: 2011Q3

REPORT INFORMATION
  Report Type: 
  Country: None (occurrence: None)
  Receive Date: 20110706
  Receipt Date: 20110706
  Transmission Date: 20111222
  Serious: Yes (Disabling)
  Sender: FDA-Public Use
  Company Number: None

PATIENT
  Sex: Female
  Weight: 90.7194 kg

DRUGS (1)
  1. LIPITOR [Suspect]
     Indication: BLOOD PRESSURE MANAGEMENT
     Dosage: 20 MG TAB PFIZ ONE TABLET DAILY
     Dates: start: 20110330, end: 20110411

REACTIONS (2)
  - ARTHRALGIA [None]
  - JOINT STIFFNESS [None]
